FAERS Safety Report 18694698 (Version 1)
Quarter: 2021Q1

REPORT INFORMATION
  Report Type: Spontaneous
  Country: US (occurrence: US)
  Receive Date: 20210104
  Receipt Date: 20210104
  Transmission Date: 20210419
  Serious: Yes (Other)
  Sender: FDA-Public Use
  Company Number: US-FRESENIUS KABI-FK202014113

PATIENT
  Age: 37 Year
  Sex: Female
  Weight: 90.7 kg

DRUGS (1)
  1. CISPLATIN KABI [Suspect]
     Active Substance: CISPLATIN
     Indication: CHEMOTHERAPY
     Dosage: CISPLATIN INJECTION
     Dates: start: 20200317

REACTIONS (3)
  - Accidental exposure to product [Not Recovered/Not Resolved]
  - Dyspnoea [Not Recovered/Not Resolved]
  - Chest discomfort [Not Recovered/Not Resolved]
